FAERS Safety Report 5853857-1 (Version None)
Quarter: 2008Q3

REPORT INFORMATION
  Report Type: 
  Country: None (occurrence: None)
  Receive Date: 20080822
  Receipt Date: 20080814
  Transmission Date: 20090109
  Serious: Yes (Hospitalization)
  Sender: FDA-Public Use
  Company Number: FR-JNJFOC-20080803453

PATIENT
  Sex: Male

DRUGS (15)
  1. DURAGESIC-100 [Suspect]
     Indication: PELVIC PAIN
     Route: 062
  2. MORPHINE [Suspect]
     Indication: PAIN
     Route: 048
  3. PROPOXYPHENE HCL AND ACETAMINOPHEN [Concomitant]
  4. LIORESAL [Concomitant]
     Route: 048
  5. RIVOTRIL [Concomitant]
     Route: 048
  6. LAROXYL ROCHE [Concomitant]
     Indication: NEURALGIA
     Route: 048
  7. ATARAX [Concomitant]
     Indication: ANXIETY
     Route: 048
  8. BACLOFENE [Concomitant]
  9. NEURONTIN [Concomitant]
  10. HEPTAMYL [Concomitant]
  11. INIPOMP [Concomitant]
  12. FORLAX [Concomitant]
  13. AMYCOR [Concomitant]
  14. LANTUS [Concomitant]
  15. NOVORAPID [Concomitant]

REACTIONS (4)
  - COMA [None]
  - OVERDOSE [None]
  - PNEUMONIA ASPIRATION [None]
  - THERAPEUTIC AGENT TOXICITY [None]
